FAERS Safety Report 12632556 (Version 2)
Quarter: 2016Q3

REPORT INFORMATION
  Report Type: Spontaneous
  Country: US (occurrence: US)
  Receive Date: 20160808
  Receipt Date: 20160808
  Transmission Date: 20161109
  Serious: No
  Sender: FDA-Public Use
  Company Number: US-BEH-2015055993

PATIENT
  Sex: Female
  Weight: 61 kg

DRUGS (14)
  1. VITAMIN D [Concomitant]
     Active Substance: CHOLECALCIFEROL
  2. LMX [Concomitant]
     Active Substance: LIDOCAINE
  3. ATIVAN [Concomitant]
     Active Substance: LORAZEPAM
  4. PROBIOTIC [Concomitant]
     Active Substance: PROBIOTICS NOS
  5. MAGNESIUM [Concomitant]
     Active Substance: MAGNESIUM
  6. EPIPEN [Concomitant]
     Active Substance: EPINEPHRINE
  7. ACETAMINOPHEN. [Concomitant]
     Active Substance: ACETAMINOPHEN
  8. POTASSIUM CHLORIDE. [Concomitant]
     Active Substance: POTASSIUM CHLORIDE
  9. RANITIDINE. [Concomitant]
     Active Substance: RANITIDINE
  10. ARMOUR THYROID [Concomitant]
     Active Substance: THYROID, PORCINE
  11. BIOTIN [Concomitant]
     Active Substance: BIOTIN
  12. HIZENTRA [Suspect]
     Active Substance: HUMAN IMMUNOGLOBULIN G
     Indication: IMMUNODEFICIENCY COMMON VARIABLE
     Route: 058
     Dates: start: 20151007
  13. ATENOLOL. [Concomitant]
     Active Substance: ATENOLOL
  14. CLARITIN [Concomitant]
     Active Substance: LORATADINE

REACTIONS (1)
  - Pruritus [Unknown]
